FAERS Safety Report 10965710 (Version 1)
Quarter: 2015Q1

REPORT INFORMATION
  Report Type: Spontaneous
  Country: US (occurrence: None)
  Receive Date: 20150327
  Receipt Date: 20150327
  Transmission Date: 20150721
  Serious: Yes (Disabling)
  Sender: FDA-Public Use
  Company Number: None

PATIENT
  Age: 45 Year
  Sex: Female
  Weight: 115.67 kg

DRUGS (4)
  1. PRILOSEC [Concomitant]
     Active Substance: OMEPRAZOLE MAGNESIUM
  2. BELVIQ [Suspect]
     Active Substance: LORCASERIN HYDROCHLORIDE
     Indication: WEIGHT CONTROL
     Dosage: 30
     Route: 048
     Dates: start: 20150320, end: 20150321
  3. DUXIS [Concomitant]
  4. BELVIQ [Suspect]
     Active Substance: LORCASERIN HYDROCHLORIDE
     Indication: DECREASED APPETITE
     Dosage: 30
     Route: 048
     Dates: start: 20150320, end: 20150321

REACTIONS (9)
  - Dyspnoea [None]
  - Disturbance in attention [None]
  - Feeling abnormal [None]
  - Sedation [None]
  - Somnolence [None]
  - Headache [None]
  - Fatigue [None]
  - Impaired driving ability [None]
  - Apathy [None]

NARRATIVE: CASE EVENT DATE: 20150320
